FAERS Safety Report 13555101 (Version 1)
Quarter: 2017Q2

REPORT INFORMATION
  Report Type: Spontaneous
  Country: US (occurrence: US)
  Receive Date: 20170517
  Receipt Date: 20170517
  Transmission Date: 20170830
  Serious: Yes (Other)
  Sender: FDA-Public Use
  Company Number: US-SA-2017SA087262

PATIENT
  Sex: Female

DRUGS (1)
  1. GARLIQUE [Suspect]
     Active Substance: GARLIC
     Route: 065

REACTIONS (1)
  - Haemorrhagic diathesis [Unknown]
